FAERS Safety Report 5520303-7 (Version None)
Quarter: 2007Q4

REPORT INFORMATION
  Report Type: 
  Country: None (occurrence: None)
  Receive Date: 20071115
  Receipt Date: 20071115
  Transmission Date: 20080405
  Serious: Yes (Disabling, Other)
  Sender: FDA-Public Use
  Company Number: None

PATIENT
  Sex: Female
  Weight: 76.2043 kg

DRUGS (1)
  1. ZOOM BLEACHING, DISCUS DENTAL [Suspect]
     Indication: DENTAL CARE
     Dosage: BLEACH/ZOOM LASER 15MIN.
     Dates: start: 20060724

REACTIONS (1)
  - PAIN [None]
